FAERS Safety Report 19110052 (Version 2)
Quarter: 2021Q2

REPORT INFORMATION
  Report Type: Spontaneous
  Country: US (occurrence: US)
  Receive Date: 20210408
  Receipt Date: 20210608
  Transmission Date: 20210717
  Serious: Yes (Hospitalization, Other)
  Sender: FDA-Public Use
  Company Number: US-GW PHARMA-202104USGW01435

PATIENT

DRUGS (2)
  1. EPIDIOLEX [Suspect]
     Active Substance: CANNABIDIOL
     Indication: SEIZURE
  2. EPIDIOLEX [Suspect]
     Active Substance: CANNABIDIOL
     Indication: EPILEPSY
     Dosage: 24.23 MG/KG/DAY, 700 MILLIGRAM, QD (300 MG EVERY MORNING AND 400 MG AT BEDTIME)
     Dates: start: 2019

REACTIONS (2)
  - Seizure [Unknown]
  - Prescribed overdose [Unknown]
